FAERS Safety Report 6553620-2 (Version None)
Quarter: 2010Q1

REPORT INFORMATION
  Report Type: 
  Country: None (occurrence: None)
  Receive Date: 20100127
  Receipt Date: 20100117
  Transmission Date: 20100710
  Serious: Yes (Death)
  Sender: FDA-Public Use
  Company Number: KR-PFIZER INC-2009283313

PATIENT
  Age: 64 Year
  Sex: Female
  Weight: 58 kg

DRUGS (6)
  1. VORICONAZOLE [Suspect]
     Indication: ASPERGILLOSIS
     Dosage: 330 MG, 2X/DAY
     Route: 042
     Dates: start: 20090228, end: 20090228
  2. VORICONAZOLE [Suspect]
     Dosage: 200 MG, 2X/DAY
     Route: 042
     Dates: start: 20090301, end: 20090316
  3. METRONIDAZOLE [Concomitant]
     Indication: BACTERIAL INFECTION
     Dosage: 500 MG, 3X/DAY
     Route: 048
     Dates: start: 20090305, end: 20090312
  4. MEROPENEM [Concomitant]
     Indication: BACTERIAL INFECTION
     Dosage: 1 G, 3X/DAY
     Route: 042
     Dates: start: 20090301, end: 20090325
  5. SYNERCID [Concomitant]
     Indication: BACTERIAL INFECTION
     Dosage: UNK
     Route: 042
     Dates: start: 20090317, end: 20090325
  6. ZYVOX [Concomitant]
     Indication: BACTERIAL INFECTION
     Dosage: 600 MG, 2X/DAY
     Route: 042
     Dates: start: 20090305, end: 20090316

REACTIONS (1)
  - SEPSIS [None]
